FAERS Safety Report 9494608 (Version 6)
Quarter: 2014Q1

REPORT INFORMATION
  Report Type: Spontaneous
  Country: JP (occurrence: None)
  Receive Date: 20130828
  Receipt Date: 20140327
  Transmission Date: 20141002
  Serious: Yes (Hospitalization)
  Sender: FDA-Public Use
  Company Number: SYM-2013-09565

PATIENT
  Age: 47 Year
  Sex: Female
  Weight: 49 kg

DRUGS (11)
  1. CHOREAZINE [Suspect]
     Indication: HUNTINGTON^S DISEASE
     Route: 048
     Dates: start: 20130730, end: 20130810
  2. SERENACE [Concomitant]
  3. MUCOSTA [Concomitant]
  4. GASTER [Concomitant]
  5. ALLELOCK [Concomitant]
  6. HOMOCLOMIN [Concomitant]
  7. ZETIA [Concomitant]
  8. CELESTAMINE [Concomitant]
  9. FERO-GRADUMET [Concomitant]
  10. HYTHIOL [Concomitant]
  11. DEPAS (ETIZOLAM) (ETIZOLAM) [Concomitant]

REACTIONS (5)
  - Blood prolactin increased [None]
  - Insomnia [None]
  - Dyskinesia [None]
  - Mental impairment [None]
  - Condition aggravated [None]
